FAERS Safety Report 4593968-4 (Version None)
Quarter: 2005Q1

REPORT INFORMATION
  Report Type: 
  Country: None (occurrence: None)
  Receive Date: 20050301
  Receipt Date: 20030926
  Transmission Date: 20050727
  Serious: Yes (Hospitalization, Disabling, Other)
  Sender: FDA-Public Use
  Company Number: US-MERCK-0309USA03139

PATIENT
  Age: 41 Year
  Sex: Female
  Weight: 87 kg

DRUGS (14)
  1. VIOXX [Suspect]
     Indication: ARTHRALGIA
     Route: 048
     Dates: start: 19990601, end: 19991001
  2. VIOXX [Suspect]
     Route: 048
     Dates: start: 19990101, end: 20010101
  3. VIOXX [Suspect]
     Route: 048
     Dates: start: 20030914, end: 20040101
  4. DIFLUNISAL [Concomitant]
     Route: 065
  5. ULTRAM [Concomitant]
     Route: 065
  6. REBETOL [Concomitant]
     Route: 065
  7. ALLEGRA [Concomitant]
     Route: 065
  8. SOMA [Concomitant]
     Route: 048
  9. PREMARIN [Concomitant]
     Route: 065
  10. DARVOCET-N 100 [Concomitant]
     Route: 065
  11. ACCUPRIL [Concomitant]
     Indication: BLOOD PRESSURE
     Route: 065
  12. WELLBUTRIN [Concomitant]
     Route: 065
  13. ESTRATEST [Concomitant]
     Indication: HORMONE REPLACEMENT THERAPY
     Route: 065
  14. REBETRON [Concomitant]
     Route: 065
     Dates: start: 19991020, end: 19991001

REACTIONS (56)
  - ABDOMINAL PAIN UPPER [None]
  - ANXIETY [None]
  - ARTHRALGIA [None]
  - ASTHENIA [None]
  - ASTHMA [None]
  - ATHEROSCLEROSIS [None]
  - BILIARY NEOPLASM [None]
  - BLOOD CHOLESTEROL INCREASED [None]
  - CARDIOMEGALY [None]
  - CAROTID ARTERY OCCLUSION [None]
  - CEREBROVASCULAR ACCIDENT [None]
  - CHEST PAIN [None]
  - CONCUSSION [None]
  - CONSTIPATION [None]
  - CONTUSION [None]
  - DECREASED APPETITE [None]
  - DEPRESSION [None]
  - DRUG ABUSER [None]
  - DRY MOUTH [None]
  - DYSGEUSIA [None]
  - DYSLIPIDAEMIA [None]
  - DYSPHONIA [None]
  - DYSPNOEA [None]
  - EXCORIATION [None]
  - FALL [None]
  - FATIGUE [None]
  - GASTROINTESTINAL HAEMORRHAGE [None]
  - GASTROOESOPHAGEAL REFLUX DISEASE [None]
  - HEADACHE [None]
  - HEPATIC STEATOSIS [None]
  - HOT FLUSH [None]
  - HYPERHIDROSIS [None]
  - HYPERLIPIDAEMIA [None]
  - INSOMNIA [None]
  - LACERATION [None]
  - MACROCYTOSIS [None]
  - MALAISE [None]
  - MELAENA [None]
  - MICROCYTIC ANAEMIA [None]
  - MITRAL VALVE INCOMPETENCE [None]
  - MUSCLE SPASMS [None]
  - NAUSEA [None]
  - NEUROGENIC BLADDER [None]
  - OEDEMA PERIPHERAL [None]
  - ORTHOSTATIC HYPOTENSION [None]
  - OSTEOPOROSIS [None]
  - PAIN [None]
  - PAIN IN EXTREMITY [None]
  - PNEUMONIA [None]
  - PULMONARY CONGESTION [None]
  - SKIN ULCER [None]
  - SPINAL COMPRESSION FRACTURE [None]
  - SUICIDAL IDEATION [None]
  - TIBIA FRACTURE [None]
  - URINARY TRACT INFECTION [None]
  - WEIGHT INCREASED [None]
